FAERS Safety Report 9166771 (Version 1)
Quarter: 2012Q4

REPORT INFORMATION
  Report Type: 
  Country: US (occurrence: US)
  Receive Date: 20121126
  Receipt Date: 20121126
  Transmission Date: 20130627
  Serious: Yes (Other)
  Sender: FDA-Public Use
  Company Number: US-RB-046698-12

PATIENT
  Age: 62 Year
  Sex: Female

DRUGS (2)
  1. MUCINEX [Suspect]
     Indication: INFECTION
     Dosage: Last dose was on 13-NOV-2012
     Route: 048
     Dates: start: 20121111
  2. Z-PACK-ZITHROM [Suspect]
     Indication: INFECTION
     Dates: start: 20121111

REACTIONS (1)
  - Hypertension [Not Recovered/Not Resolved]
